FAERS Safety Report 13337576 (Version 2)
Quarter: 2017Q1

REPORT INFORMATION
  Report Type: Spontaneous
  Country: JP (occurrence: JP)
  Receive Date: 20170315
  Receipt Date: 20170319
  Transmission Date: 20170428
  Serious: Yes (Hospitalization, Other)
  Sender: FDA-Public Use
  Company Number: PHJP2017JP008687

PATIENT
  Age: 55 Year
  Sex: Female

DRUGS (3)
  1. NEORAL [Suspect]
     Active Substance: CYCLOSPORINE
     Indication: RENAL TRANSPLANT
     Dosage: 100 MG/DAY, TWICE A DAY
     Route: 048
     Dates: end: 201607
  2. PREDNISOLON [Concomitant]
     Active Substance: PREDNISOLONE
     Indication: PRODUCT USED FOR UNKNOWN INDICATION
     Dosage: 5 MG, QD (IN THE MORNING)
     Route: 048
  3. NEORAL [Suspect]
     Active Substance: CYCLOSPORINE
     Dosage: 75 MG/DAY, TWICE A DAY
     Route: 048
     Dates: start: 201607

REACTIONS (4)
  - Ligament injury [Unknown]
  - Fall [Unknown]
  - Avulsion fracture [Unknown]
  - Renal impairment [Unknown]
